FAERS Safety Report 19894014 (Version 1)
Quarter: 2021Q3

REPORT INFORMATION
  Report Type: Spontaneous
  Country: RU (occurrence: RU)
  Receive Date: 20210929
  Receipt Date: 20210929
  Transmission Date: 20211014
  Serious: Yes (Death, Life-Threatening, Hospitalization, Other)
  Sender: FDA-Public Use
  Company Number: RU-AMGEN-RUSSP2021146659

PATIENT
  Age: 12 Year

DRUGS (4)
  1. ETHAMSYLATE [Concomitant]
     Active Substance: ETHAMSYLATE
  2. ROMIPLOSTIM [Suspect]
     Active Substance: ROMIPLOSTIM
     Indication: HAEMORRHAGIC DISORDER
  3. ROMIPLOSTIM [Suspect]
     Active Substance: ROMIPLOSTIM
     Indication: IMMUNE THROMBOCYTOPENIA
     Dosage: 7.5 MICROGRAM/KILOGRAM
     Route: 065
  4. TRANEXAMIC ACID. [Concomitant]
     Active Substance: TRANEXAMIC ACID

REACTIONS (7)
  - Cerebral circulatory failure [Unknown]
  - Diabetes insipidus [Unknown]
  - Cerebral haemorrhage [Fatal]
  - Vascular insufficiency [Unknown]
  - Multiple organ dysfunction syndrome [Fatal]
  - Encephalomalacia [Fatal]
  - Respiratory failure [Unknown]

NARRATIVE: CASE EVENT DATE: 20200211
